FAERS Safety Report 23577560 (Version 1)
Quarter: 2024Q1

REPORT INFORMATION
  Report Type: Spontaneous
  Country: US (occurrence: US)
  Receive Date: 20240228
  Receipt Date: 20240228
  Transmission Date: 20240409
  Serious: No
  Sender: FDA-Public Use
  Company Number: US-NOVOPROD-1026107

PATIENT
  Age: 63 Year
  Sex: Female

DRUGS (1)
  1. SAXENDA [Suspect]
     Active Substance: LIRAGLUTIDE
     Indication: Weight control
     Dosage: 3.0 MG DAILY
     Route: 058
     Dates: start: 202211

REACTIONS (6)
  - Blood alkaline phosphatase increased [Unknown]
  - White blood cell count increased [Unknown]
  - Vitamin B12 increased [Unknown]
  - Fatigue [Unknown]
  - Abdominal discomfort [Unknown]
  - Drug dose titration not performed [Unknown]

NARRATIVE: CASE EVENT DATE: 20220101
